FAERS Safety Report 10744632 (Version 1)
Quarter: 2015Q1

REPORT INFORMATION
  Report Type: Spontaneous
  Country: US (occurrence: None)
  Receive Date: 20150126
  Receipt Date: 20150126
  Transmission Date: 20150721
  Serious: Yes (Disabling)
  Sender: FDA-Public Use
  Company Number: None

PATIENT
  Age: 66 Year
  Sex: Female
  Weight: 123.38 kg

DRUGS (2)
  1. DULOXETINE [Suspect]
     Active Substance: DULOXETINE
     Indication: DEPRESSION
     Dosage: LESS THAN A MONTH?60+30 MG ?ONCE DAILY ?TAKEN BY MOUTH
     Route: 048
  2. DULOXETINE [Suspect]
     Active Substance: DULOXETINE
     Indication: NEURALGIA
     Dosage: LESS THAN A MONTH?60+30 MG ?ONCE DAILY ?TAKEN BY MOUTH
     Route: 048

REACTIONS (14)
  - Depressed mood [None]
  - Feeling of despair [None]
  - Social avoidant behaviour [None]
  - Apathy [None]
  - Depression [None]
  - Emotional disorder [None]
  - Irritability [None]
  - Anxiety [None]
  - Aggression [None]
  - Listless [None]
  - Product substitution issue [None]
  - Screaming [None]
  - Myalgia [None]
  - Somnolence [None]

NARRATIVE: CASE EVENT DATE: 20140603
